FAERS Safety Report 20346670 (Version 1)
Quarter: 2022Q1

REPORT INFORMATION
  Report Type: Spontaneous
  Country: PK (occurrence: PK)
  Receive Date: 20220118
  Receipt Date: 20220118
  Transmission Date: 20220424
  Serious: Yes (Death)
  Sender: FDA-Public Use
  Company Number: PK-PFIZER INC-202100911100

PATIENT
  Age: 49 Year
  Sex: Female

DRUGS (10)
  1. IBRANCE [Suspect]
     Active Substance: PALBOCICLIB
     Indication: Breast cancer
     Dosage: 125 MG
     Dates: start: 20210621
  2. IBRANCE [Suspect]
     Active Substance: PALBOCICLIB
     Dosage: 100 MG, CYCLIC (OD , 3 WEEKS ON AND 1 WEEK OFF)
  3. IBRANCE [Suspect]
     Active Substance: PALBOCICLIB
     Dosage: 100 MG, 1X/DAY
     Route: 048
     Dates: start: 20210526
  4. LORELIN [Concomitant]
     Dosage: UNK
     Dates: start: 20210426
  5. FEMARA [Concomitant]
     Active Substance: LETROZOLE
  6. MACDRONIC [Concomitant]
     Dosage: 4 MG
  7. CALCIUM CARBONATE [Concomitant]
     Active Substance: CALCIUM CARBONATE
     Dosage: 1000
  8. SUNNY D [Concomitant]
     Dosage: UNK
  9. ARTHROTEC [Concomitant]
     Active Substance: DICLOFENAC SODIUM\MISOPROSTOL
     Dosage: UNK
  10. TRIMETABOL [CARNITINE HYDROCHLORIDE;CYANOCOBALAMIN;CYPROHEPTADINE ACEF [Concomitant]
     Dosage: UNK

REACTIONS (1)
  - Death [Fatal]
